FAERS Safety Report 12108955 (Version 1)
Quarter: 2016Q1

REPORT INFORMATION
  Report Type: Spontaneous
  Country: US (occurrence: None)
  Receive Date: 20160222
  Receipt Date: 20160222
  Transmission Date: 20160526
  Serious: Yes (Hospitalization)
  Sender: FDA-Public Use
  Company Number: None

PATIENT
  Age: 32 Year
  Sex: Female

DRUGS (7)
  1. DEXMEDETOMIDINE. [Suspect]
     Active Substance: DEXMEDETOMIDINE
     Indication: SEDATION
     Dosage: 0.5 MCG/KG/HOUR  CONTINUOUS IV
     Route: 042
     Dates: start: 20160122, end: 20160122
  2. MIDAZOLAM [Concomitant]
     Active Substance: MIDAZOLAM\MIDAZOLAM HYDROCHLORIDE
  3. SCOPOLAMINE [Concomitant]
     Active Substance: SCOPOLAMINE
  4. CEFAZOLIN [Concomitant]
     Active Substance: CEFAZOLIN
  5. ONDANSETRON [Concomitant]
     Active Substance: ONDANSETRON
  6. PROPOFOL. [Concomitant]
     Active Substance: PROPOFOL
  7. FENTANYL. [Concomitant]
     Active Substance: FENTANYL

REACTIONS (7)
  - Nausea [None]
  - Dizziness [None]
  - Loss of consciousness [None]
  - Bradycardia [None]
  - Muscle contractions involuntary [None]
  - Cardio-respiratory arrest [None]
  - Blood pressure systolic decreased [None]

NARRATIVE: CASE EVENT DATE: 20160122
